FAERS Safety Report 11497165 (Version 1)
Quarter: 2015Q3

REPORT INFORMATION
  Report Type: Report from Study
  Country: US (occurrence: US)
  Receive Date: 20150911
  Receipt Date: 20150911
  Transmission Date: 20151125
  Serious: No
  Sender: FDA-Public Use
  Company Number: PHEH2015US016535

PATIENT
  Age: 50 Year
  Sex: Female
  Weight: 86.17 kg

DRUGS (1)
  1. GILENYA [Suspect]
     Active Substance: FINGOLIMOD HYDROCHLORIDE
     Indication: MULTIPLE SCLEROSIS
     Dosage: 0.5 MG, QD
     Route: 048
     Dates: start: 20150530

REACTIONS (8)
  - Dyspnoea [Not Recovered/Not Resolved]
  - Feeling abnormal [Unknown]
  - Vision blurred [Not Recovered/Not Resolved]
  - Dizziness [Not Recovered/Not Resolved]
  - Hypokinesia [Recovering/Resolving]
  - Balance disorder [Unknown]
  - Weight increased [Not Recovered/Not Resolved]
  - Muscle spasticity [Recovering/Resolving]

NARRATIVE: CASE EVENT DATE: 201506
